FAERS Safety Report 10194254 (Version 2)
Quarter: 2014Q2

REPORT INFORMATION
  Report Type: Report from Study
  Country: US (occurrence: US)
  Receive Date: 20140526
  Receipt Date: 20140605
  Transmission Date: 20141212
  Serious: Yes (Other)
  Sender: FDA-Public Use
  Company Number: US-ROCHE-1404852

PATIENT
  Age: 79 Year
  Sex: Male
  Weight: 74.91 kg

DRUGS (2)
  1. LUCENTIS [Suspect]
     Indication: AGE-RELATED MACULAR DEGENERATION
     Route: 065
     Dates: start: 20081229, end: 200902
  2. PRESERVISION AREDS [Concomitant]
     Route: 048
     Dates: start: 2008

REACTIONS (4)
  - Leukaemia [Not Recovered/Not Resolved]
  - Blindness unilateral [Not Recovered/Not Resolved]
  - Retinal oedema [Not Recovered/Not Resolved]
  - Drug ineffective [Unknown]
